FAERS Safety Report 9439501 (Version 3)
Quarter: 2015Q3

REPORT INFORMATION
  Report Type: Report from Study
  Country: US (occurrence: US)
  Receive Date: 20130805
  Receipt Date: 20150807
  Transmission Date: 20151125
  Serious: Yes (Hospitalization)
  Sender: FDA-Public Use
  Company Number: US-BIOGENIDEC-2013BI071305

PATIENT
  Age: 52 Year
  Sex: Female

DRUGS (4)
  1. TYSABRI [Suspect]
     Active Substance: NATALIZUMAB
     Indication: MULTIPLE SCLEROSIS
     Route: 042
     Dates: start: 20150120
  2. GILENYA [Concomitant]
     Active Substance: FINGOLIMOD HYDROCHLORIDE
  3. REBIF [Concomitant]
     Active Substance: INTERFERON BETA-1A
  4. TYSABRI [Suspect]
     Active Substance: NATALIZUMAB
     Indication: MULTIPLE SCLEROSIS
     Route: 042
     Dates: start: 20111229, end: 20141118

REACTIONS (17)
  - Fall [Recovered/Resolved]
  - Joint injury [Recovered/Resolved]
  - Emotional distress [Unknown]
  - Neck surgery [Recovered/Resolved]
  - Gait disturbance [Not Recovered/Not Resolved]
  - Depressed level of consciousness [Unknown]
  - Rotator cuff syndrome [Recovered/Resolved]
  - Wrist fracture [Recovered/Resolved]
  - Weight decreased [Recovered/Resolved]
  - Balance disorder [Not Recovered/Not Resolved]
  - Suture insertion [Unknown]
  - Hypertension [Unknown]
  - Crying [Not Recovered/Not Resolved]
  - Contusion [Recovered/Resolved]
  - Multiple sclerosis [Unknown]
  - Sluggishness [Recovered/Resolved]
  - Multiple sclerosis relapse [Recovered/Resolved]

NARRATIVE: CASE EVENT DATE: 20130618
